FAERS Safety Report 9240477 (Version 1)
Quarter: 2013Q2

REPORT INFORMATION
  Report Type: Spontaneous
  Country: US (occurrence: US)
  Receive Date: 20130418
  Receipt Date: 20130418
  Transmission Date: 20140414
  Serious: No
  Sender: FDA-Public Use
  Company Number: US-SANOFI-AVENTIS-2012SA060736

PATIENT
  Age: 1 Day
  Sex: Male
  Weight: 2.1 kg

DRUGS (1)
  1. LOVENOX [Suspect]
     Route: 063
     Dates: start: 20111225, end: 20111227

REACTIONS (2)
  - Jaundice neonatal [Recovered/Resolved]
  - Exposure during breast feeding [Unknown]
